FAERS Safety Report 23505919 (Version 3)
Quarter: 2025Q1

REPORT INFORMATION
  Report Type: Report from Study
  Country: US (occurrence: US)
  Receive Date: 20240209
  Receipt Date: 20250327
  Transmission Date: 20250408
  Serious: Yes (Other)
  Sender: AVADEL CNS PHARMACEUTICALS, LLC
  Company Number: US-AVADEL CNS PHARMACEUTICALS, LLC-2024AVA00127

PATIENT
  Age: 34 Year
  Sex: Male
  Weight: 64.4 kg

DRUGS (8)
  1. LUMRYZ [Suspect]
     Active Substance: SODIUM OXYBATE
     Indication: Narcolepsy
     Dosage: 9 G, ONCE NIGHTLY
     Dates: start: 2022, end: 20250307
  2. LUMRYZ [Suspect]
     Active Substance: SODIUM OXYBATE
     Indication: Somnolence
  3. ACETAMINOPHEN [Concomitant]
     Active Substance: ACETAMINOPHEN
     Dosage: 2 TABLETS (1000 MG), EVERY 6 HOURS
     Route: 048
  4. AMPHETAMINE SULFATE\DEXTROAMPHETAMINE [Concomitant]
     Active Substance: AMPHETAMINE SULFATE\DEXTROAMPHETAMINE
     Dosage: 1 TABLET (15 MG), 2X/DAY
     Route: 048
  5. ATOMOXETINE [Concomitant]
     Active Substance: ATOMOXETINE
     Dosage: 1 CAPSULE (10 MG), 1X/DAY AT BEDTIME
     Route: 048
  6. FLUOXETINE [Concomitant]
     Active Substance: FLUOXETINE HYDROCHLORIDE
     Dosage: 3 CAPSULE (60 MG), 1X/DAY
     Route: 048
  7. IBUPROFEN [Concomitant]
     Active Substance: IBUPROFEN
     Dosage: 1 TABLET (800 MG), EVERY 6 HOURS
     Route: 048
  8. PHENAZOPYRIDINE [Concomitant]
     Active Substance: PHENAZOPYRIDINE

REACTIONS (9)
  - Cellulitis [Not Recovered/Not Resolved]
  - Subcutaneous abscess [Not Recovered/Not Resolved]
  - Dyspnoea [Not Recovered/Not Resolved]
  - Migraine [Unknown]
  - Hypoaesthesia [Unknown]
  - Lid sulcus deepened [Unknown]
  - Musculoskeletal chest pain [Unknown]
  - Discomfort [Unknown]
  - Product dose omission issue [Not Recovered/Not Resolved]

NARRATIVE: CASE EVENT DATE: 20240101
